FAERS Safety Report 9538731 (Version 2)
Quarter: 2013Q4

REPORT INFORMATION
  Report Type: Report from Study
  Country: AR (occurrence: AR)
  Receive Date: 20130920
  Receipt Date: 20131107
  Transmission Date: 20140711
  Serious: Yes (Hospitalization, Other)
  Sender: FDA-Public Use
  Company Number: PHHY2013AR104204

PATIENT
  Sex: Male

DRUGS (1)
  1. DIOVAN [Suspect]
     Indication: HYPERTENSION
     Dosage: 1.5 DF (160MG) DAILY
     Route: 048
     Dates: start: 2011

REACTIONS (7)
  - Chronic obstructive pulmonary disease [Recovered/Resolved]
  - Paralysis [Recovered/Resolved]
  - Hypertension [Not Recovered/Not Resolved]
  - Stress [Recovered/Resolved]
  - Hypoaesthesia [Recovered/Resolved]
  - Speech disorder [Recovered/Resolved]
  - Wrong technique in drug usage process [Not Recovered/Not Resolved]
